FAERS Safety Report 5004260-8 (Version None)
Quarter: 2006Q2

REPORT INFORMATION
  Report Type: 
  Country: None (occurrence: None)
  Receive Date: 20060517
  Receipt Date: 20051005
  Transmission Date: 20061013
  Serious: Yes (Hospitalization, Disabling)
  Sender: FDA-Public Use
  Company Number: US-MERCK-0510USA05254

PATIENT
  Age: 71 Year
  Sex: Female

DRUGS (1)
  1. VIOXX [Suspect]
     Route: 048

REACTIONS (13)
  - ANAEMIA [None]
  - ANGINA PECTORIS [None]
  - ARRHYTHMIA [None]
  - ASTHMA [None]
  - BRONCHITIS [None]
  - CARDIOVASCULAR DISORDER [None]
  - DEEP VEIN THROMBOSIS [None]
  - HYPERTENSION [None]
  - LOWER GASTROINTESTINAL HAEMORRHAGE [None]
  - POLYTRAUMATISM [None]
  - PULMONARY EMBOLISM [None]
  - SYNCOPE [None]
  - UPPER RESPIRATORY TRACT INFECTION [None]
